FAERS Safety Report 9161243 (Version 2)
Quarter: 2013Q2

REPORT INFORMATION
  Report Type: Spontaneous
  Country: IT (occurrence: IT)
  Receive Date: 20130313
  Receipt Date: 20130423
  Transmission Date: 20140414
  Serious: Yes (Hospitalization)
  Sender: FDA-Public Use
  Company Number: IT-009507513-1303ITA005119

PATIENT
  Age: 92 Year
  Sex: Female
  Weight: 61 kg

DRUGS (7)
  1. NEO-LOTAN 12.5MG COMPRESSE RIVESTITE CON FILM [Suspect]
     Indication: HYPERTENSION
     Dosage: 12.5 MG, QD
     Route: 048
     Dates: start: 20040101, end: 20130225
  2. LASIX (FUROSEMIDE) [Suspect]
     Indication: HYPERTENSION
     Dosage: 25 MG, QD
     Route: 048
     Dates: start: 20040101, end: 20130225
  3. LACIPIL [Suspect]
     Indication: HYPERTENSION
     Dosage: 4 MG, QD
     Route: 048
     Dates: start: 20040101, end: 20130225
  4. CARDURA [Suspect]
     Indication: HYPERTENSION
     Dosage: 2 MG, QD
     Route: 048
     Dates: start: 20040101, end: 20130225
  5. LANSOX [Concomitant]
     Dosage: UNK
     Route: 048
     Dates: start: 20120101, end: 20130225
  6. TEGRETOL [Concomitant]
     Indication: TRIGEMINAL NEURALGIA
     Dosage: UNK
     Route: 048
     Dates: start: 20120101, end: 20130225
  7. EUTIROX [Concomitant]
     Dosage: UNK
     Route: 048
     Dates: start: 20120101, end: 20130225

REACTIONS (3)
  - Syncope [Recovering/Resolving]
  - Hypotension [Recovering/Resolving]
  - Disease recurrence [None]
